FAERS Safety Report 10103230 (Version 1)
Quarter: 2014Q2

REPORT INFORMATION
  Report Type: Spontaneous
  Country: US (occurrence: US)
  Receive Date: 20140424
  Receipt Date: 20140424
  Transmission Date: 20141212
  Serious: No
  Sender: FDA-Public Use
  Company Number: US-BRISTOL-MYERS SQUIBB COMPANY-20198214

PATIENT
  Sex: Male

DRUGS (2)
  1. ELIQUIS [Suspect]
  2. CIALIS [Concomitant]
     Indication: PROSTATE CANCER

REACTIONS (2)
  - Hypersensitivity [Unknown]
  - Dyspnoea [Unknown]
